FAERS Safety Report 8878217 (Version 1)
Quarter: 2012Q4

REPORT INFORMATION
  Report Type: 
  Country: US (occurrence: US)
  Receive Date: 20121025
  Receipt Date: 20121025
  Transmission Date: 20130627
  Serious: No
  Sender: FDA-Public Use
  Company Number: US-AMGEN-USASP2012022018

PATIENT
  Age: 57 Year
  Sex: Female
  Weight: 108.84 kg

DRUGS (10)
  1. ENBREL [Suspect]
     Indication: PRODUCT USED FOR UNKNOWN INDICATION
     Dosage: 50 mg, qwk
     Route: 058
  2. HYDROCHLOROTH [Concomitant]
     Dosage: 25 mg, UNK
  3. FERROUS SULFATE [Concomitant]
     Dosage: 325 mg, UNK
  4. HYDROCODONE/APAP [Concomitant]
  5. ESTER-C                            /00008001/ [Concomitant]
  6. VITAMIN D /00107901/ [Concomitant]
     Dosage: 400 IU, UNK
  7. CALCIUM [Concomitant]
  8. MINERALS NOS [Concomitant]
  9. TYLENOL /00020001/ [Concomitant]
     Dosage: 500 mg, UNK
  10. MULTIVITAMIN                       /00097801/ [Concomitant]

REACTIONS (3)
  - Blood pressure increased [Unknown]
  - Injection site bruising [Unknown]
  - Nasopharyngitis [Unknown]
